FAERS Safety Report 6079964-9 (Version None)
Quarter: 2009Q1

REPORT INFORMATION
  Report Type: 
  Country: None (occurrence: None)
  Receive Date: 20090217
  Receipt Date: 20090121
  Transmission Date: 20090719
  Serious: No
  Sender: FDA-Public Use
  Company Number: A0745938A

PATIENT
  Age: 83 Year
  Sex: Female

DRUGS (6)
  1. COREG CR [Suspect]
     Indication: HYPERTENSION
     Dosage: 20MG PER DAY
     Route: 048
     Dates: start: 20070101
  2. ASPIRIN [Suspect]
     Route: 048
     Dates: start: 20080902
  3. CHLORASEPTIC [Suspect]
     Route: 048
     Dates: start: 20080902
  4. LISINOPRIL [Concomitant]
  5. STATINS [Concomitant]
  6. BENAZEPRIL HYDROCHLORIDE [Concomitant]

REACTIONS (5)
  - BLOOD PRESSURE INCREASED [None]
  - FATIGUE [None]
  - LIP SWELLING [None]
  - OROPHARYNGEAL PAIN [None]
  - SWOLLEN TONGUE [None]
